FAERS Safety Report 16197823 (Version 2)
Quarter: 2019Q2

REPORT INFORMATION
  Report Type: Not Available
  Country: US (occurrence: US)
  Receive Date: 20190415
  Receipt Date: 20190603
  Transmission Date: 20190711
  Serious: No
  Sender: FDA-Public Use
  Company Number: US-NEUROCRINE BIOSCIENCES INC.-2019NBI00870

PATIENT
  Sex: Male

DRUGS (13)
  1. HUMALOG [Concomitant]
     Active Substance: INSULIN LISPRO
     Route: 058
     Dates: start: 2009
  2. CYTOMEL [Concomitant]
     Active Substance: LIOTHYRONINE SODIUM
     Dates: start: 2015
  3. INGREZZA [Suspect]
     Active Substance: VALBENAZINE
     Route: 048
     Dates: start: 20190301, end: 20190520
  4. LISINOPRIL. [Concomitant]
     Active Substance: LISINOPRIL
     Dates: start: 2015
  5. TYROSINE [Concomitant]
     Active Substance: TYROSINE
     Dates: start: 2015
  6. LANTUS [Concomitant]
     Active Substance: INSULIN GLARGINE
     Dosage: 45 UNITS - 100 UNITS
     Dates: start: 2015
  7. INGREZZA [Suspect]
     Active Substance: VALBENAZINE
     Indication: TARDIVE DYSKINESIA
     Route: 048
     Dates: start: 20190214, end: 20190228
  8. ABILIFY [Concomitant]
     Active Substance: ARIPIPRAZOLE
     Route: 048
  9. FLONASE [Concomitant]
     Active Substance: FLUTICASONE PROPIONATE
     Dates: start: 20190501
  10. COREG [Concomitant]
     Active Substance: CARVEDILOL
     Dates: start: 2015
  11. PRAVASTATIN. [Concomitant]
     Active Substance: PRAVASTATIN
     Route: 048
  12. SEROQUEL [Concomitant]
     Active Substance: QUETIAPINE FUMARATE
     Route: 048
  13. KLONOPIN [Concomitant]
     Active Substance: CLONAZEPAM
     Dates: start: 2015

REACTIONS (7)
  - Cough [Unknown]
  - Sinus congestion [Unknown]
  - Drooling [Unknown]
  - Tardive dyskinesia [Recovered/Resolved with Sequelae]
  - Depressed mood [Unknown]
  - Therapeutic product effect incomplete [None]
  - Choking [Unknown]

NARRATIVE: CASE EVENT DATE: 2019
